FAERS Safety Report 7613033-9 (Version None)
Quarter: 2011Q3

REPORT INFORMATION
  Report Type: 
  Country: None (occurrence: None)
  Receive Date: 20110713
  Receipt Date: 20110418
  Transmission Date: 20111222
  Serious: No
  Sender: FDA-Public Use
  Company Number: US-005183

PATIENT
  Sex: Male

DRUGS (3)
  1. TYLENOL (CAPLET) [Concomitant]
  2. FLOMAX [Concomitant]
  3. DEGARELIX 80 MG [Suspect]
     Indication: PROSTATE CANCER
     Dosage: (SUBCUTANEOUS)
     Route: 058

REACTIONS (4)
  - FLUSHING [None]
  - HYPERHIDROSIS [None]
  - INJECTION SITE MASS [None]
  - POST PROCEDURAL COMPLICATION [None]
